FAERS Safety Report 15643479 (Version 1)
Quarter: 2018Q4

REPORT INFORMATION
  Report Type: Spontaneous
  Country: US (occurrence: US)
  Receive Date: 20181121
  Receipt Date: 20181121
  Transmission Date: 20190205
  Serious: Yes (Other)
  Sender: FDA-Public Use
  Company Number: None

PATIENT
  Age: 72 Year
  Sex: Male

DRUGS (1)
  1. XIAFLEX [Suspect]
     Active Substance: COLLAGENASE CLOSTRIDIUM HISTOLYTICUM
     Indication: DUPUYTREN^S CONTRACTURE
     Dosage: ?          OTHER FREQUENCY:ONCE;?
     Route: 026
     Dates: start: 20181003, end: 20181003

REACTIONS (3)
  - Haematoma [None]
  - Swelling [None]
  - Haemorrhage [None]

NARRATIVE: CASE EVENT DATE: 20181009
